FAERS Safety Report 7245464-3 (Version None)
Quarter: 2011Q1

REPORT INFORMATION
  Report Type: 
  Country: None (occurrence: None)
  Receive Date: 20110126
  Receipt Date: 20110117
  Transmission Date: 20110831
  Serious: Yes (Hospitalization)
  Sender: FDA-Public Use
  Company Number: FR-ASTRAZENECA-2010SE12697

PATIENT
  Age: 32701 Day
  Sex: Female

DRUGS (13)
  1. AUGMENTIN '125' [Suspect]
     Route: 042
     Dates: start: 20100219, end: 20100223
  2. TAHOR [Concomitant]
  3. PARIET [Concomitant]
  4. LEXOMIL [Concomitant]
  5. VASTAREL [Concomitant]
  6. DAFALGAN [Concomitant]
  7. CERIS [Concomitant]
  8. KARDEGIC [Concomitant]
  9. NEXIUM [Suspect]
     Route: 048
     Dates: start: 20100219, end: 20100223
  10. ZOFENILDUO [Concomitant]
  11. ENALAPRIL [Concomitant]
  12. FORLAX [Concomitant]
  13. TRAMADOL [Concomitant]

REACTIONS (2)
  - BLOOD CREATININE INCREASED [None]
  - RENAL FAILURE [None]
